FAERS Safety Report 8614874-1 (Version None)
Quarter: 2012Q3

REPORT INFORMATION
  Report Type: 
  Country: None (occurrence: None)
  Receive Date: 20120823
  Receipt Date: 20120612
  Transmission Date: 20120928
  Serious: No
  Sender: FDA-Public Use
  Company Number: US-BRISTOL-MYERS SQUIBB COMPANY-16682528

PATIENT
  Age: 80 Year
  Sex: Female

DRUGS (2)
  1. SIMVASTATIN [Concomitant]
  2. KOMBIGLYZE XR [Suspect]

REACTIONS (2)
  - MEDICATION ERROR [None]
  - DRUG DOSE OMISSION [None]
